FAERS Safety Report 20040420 (Version 1)
Quarter: 2021Q4

REPORT INFORMATION
  Report Type: Spontaneous
  Country: US (occurrence: None)
  Receive Date: 20211105
  Receipt Date: 20211105
  Transmission Date: 20220303
  Serious: Yes (Hospitalization)
  Sender: FDA-Public Use
  Company Number: None

PATIENT
  Age: 33 Year
  Sex: Male
  Weight: 85.5 kg

DRUGS (1)
  1. PHENAZEPAM [Suspect]
     Active Substance: PHENAZEPAM
     Indication: Drug dependence
     Dosage: FREQUENCY : AS NEEDED;?
     Route: 048
     Dates: start: 20191114, end: 20211105

REACTIONS (3)
  - Coma [None]
  - Dyskinesia [None]
  - Overdose [None]

NARRATIVE: CASE EVENT DATE: 20211031
